FAERS Safety Report 8790524 (Version 1)
Quarter: 2012Q4

REPORT INFORMATION
  Report Type: Spontaneous
  Country: US (occurrence: None)
  Receive Date: 20120912
  Receipt Date: 20120912
  Transmission Date: 20130627
  Serious: Yes (Life-Threatening, Hospitalization)
  Sender: FDA-Public Use
  Company Number: None

PATIENT
  Age: 68 Year
  Sex: Female
  Weight: 56.7 kg

DRUGS (1)
  1. METHOTREXATE [Suspect]
     Indication: RHEUMATOID ARTHRITIS
     Dosage: 8 tablets weekly po
     Route: 048
     Dates: start: 20120820, end: 20120901

REACTIONS (4)
  - Rheumatoid arthritis [None]
  - Incorrect dose administered [None]
  - Candidiasis [None]
  - White blood cell count decreased [None]
